FAERS Safety Report 17892446 (Version 1)
Quarter: 2020Q2

REPORT INFORMATION
  Report Type: Spontaneous
  Country: US (occurrence: US)
  Receive Date: 20200613
  Receipt Date: 20200613
  Transmission Date: 20200714
  Serious: No
  Sender: FDA-Public Use
  Company Number: US-DRREDDYS-USA/USA/20/0123860

PATIENT
  Sex: Male

DRUGS (1)
  1. ISOTRETINOIN NOT OTHERWISE SPECIFIED [Suspect]
     Active Substance: ISOTRETINOIN
     Indication: ACNE CYSTIC
     Route: 065

REACTIONS (2)
  - Drug ineffective [Unknown]
  - Product quality issue [Unknown]
